FAERS Safety Report 13828114 (Version 1)
Quarter: 2017Q3

REPORT INFORMATION
  Report Type: Spontaneous
  Country: US (occurrence: US)
  Receive Date: 20170802
  Receipt Date: 20170802
  Transmission Date: 20171127
  Serious: No
  Sender: FDA-Public Use
  Company Number: None

PATIENT
  Sex: Female
  Weight: 47.22 kg

DRUGS (8)
  1. FORTEO [Suspect]
     Active Substance: TERIPARATIDE
     Indication: VITAMIN D DEFICIENCY
     Route: 058
  2. FORTEO [Suspect]
     Active Substance: TERIPARATIDE
     Indication: LEFT VENTRICULAR FAILURE
     Route: 058
  3. FORTEO [Suspect]
     Active Substance: TERIPARATIDE
     Indication: POLYNEUROPATHY
     Route: 058
  4. FORTEO [Suspect]
     Active Substance: TERIPARATIDE
     Indication: PNEUMONIA
     Route: 058
  5. FORTEO [Suspect]
     Active Substance: TERIPARATIDE
     Indication: NECK PAIN
     Route: 058
  6. FORTEO [Suspect]
     Active Substance: TERIPARATIDE
     Indication: SPINAL OSTEOARTHRITIS
     Route: 058
  7. FORTEO [Suspect]
     Active Substance: TERIPARATIDE
     Indication: BACK PAIN
     Route: 058
  8. FORTEO [Suspect]
     Active Substance: TERIPARATIDE
     Indication: SPONDYLOLISTHESIS
     Route: 058

REACTIONS (1)
  - Blood calcium increased [None]
